FAERS Safety Report 5167919-8 (Version None)
Quarter: 2006Q4

REPORT INFORMATION
  Report Type: 
  Country: None (occurrence: None)
  Receive Date: 20061208
  Receipt Date: 20050331
  Transmission Date: 20070319
  Serious: No
  Sender: FDA-Public Use
  Company Number: US-GLAXOSMITHKLINE-A0552120A

PATIENT
  Age: 53 Year
  Sex: Female

DRUGS (5)
  1. AVANDAMET [Suspect]
     Dosage: 1TAB PER DAY
     Route: 048
     Dates: start: 20030101, end: 20030101
  2. AVANDIA [Suspect]
     Dosage: 4MG TWICE PER DAY
     Route: 048
     Dates: start: 20030101, end: 20030101
  3. METFORMIN [Suspect]
     Route: 065
  4. FEMARA [Concomitant]
     Route: 065
  5. ZOMETA [Concomitant]

REACTIONS (4)
  - DRUG INEFFECTIVE [None]
  - MALAISE [None]
  - NAUSEA [None]
  - PAIN [None]
